FAERS Safety Report 18749377 (Version 3)
Quarter: 2022Q2

REPORT INFORMATION
  Report Type: Spontaneous
  Country: AU (occurrence: AU)
  Receive Date: 20210116
  Receipt Date: 20220526
  Transmission Date: 20220721
  Serious: Yes (Hospitalization, Other)
  Sender: FDA-Public Use
  Company Number: NVSC2021AU007333

PATIENT
  Age: 73 Year
  Sex: Male
  Weight: 64 kg

DRUGS (5)
  1. CILOXAN [Suspect]
     Active Substance: CIPROFLOXACIN HYDROCHLORIDE
     Indication: Glaucoma surgery
     Dosage: 4 DRP, QID
     Route: 047
     Dates: start: 20201126, end: 20201230
  2. CILOXAN [Suspect]
     Active Substance: CIPROFLOXACIN HYDROCHLORIDE
     Indication: Eye operation
     Dosage: 4 DRP, QD
     Route: 065
     Dates: start: 20201128, end: 20201226
  3. METFORMIN [Concomitant]
     Active Substance: METFORMIN HYDROCHLORIDE
     Indication: Diabetes mellitus
     Dosage: 2 DOSAGE FORM, QD (2 TABLET, STARTED 3 MONTHS AGO)
     Route: 065
  4. PREDNISOLONE [Concomitant]
     Active Substance: PREDNISOLONE
     Indication: Lung disorder
     Dosage: UNK UNK, QMO (3 TABLETS, STARTED 14 YEARS AGO)
     Route: 065
  5. SYMBICORT [Concomitant]
     Active Substance: BUDESONIDE\FORMOTEROL FUMARATE DIHYDRATE
     Indication: Lung disorder
     Dosage: UNK, QD (4 PUFFS, STARTED 14 YEARS AGO)
     Route: 065

REACTIONS (5)
  - Arthralgia [Not Recovered/Not Resolved]
  - Tendon rupture [Recovering/Resolving]
  - Tendonitis [Unknown]
  - Limb discomfort [Unknown]
  - Accident [Unknown]

NARRATIVE: CASE EVENT DATE: 20201226
